FAERS Safety Report 4353316-1 (Version None)
Quarter: 2004Q2

REPORT INFORMATION
  Report Type: 
  Country: None (occurrence: None)
  Receive Date: 20040504
  Receipt Date: 20040504
  Transmission Date: 20050107
  Serious: Yes (Death, Life-Threatening, Hospitalization)
  Sender: FDA-Public Use
  Company Number: None

PATIENT
  Age: 65 Year
  Sex: Female
  Weight: 58.9676 kg

DRUGS (11)
  1. ABILIFY [Suspect]
     Indication: AGITATION
     Dosage: 10 MG DAILY ORAL
     Route: 048
     Dates: start: 20040403, end: 20040406
  2. ABILIFY [Suspect]
     Indication: DEMENTIA
     Dosage: 10 MG DAILY ORAL
     Route: 048
     Dates: start: 20040403, end: 20040406
  3. GEODON [Suspect]
     Indication: DEMENTIA
     Dosage: 20 MG Q12 H PRN ORAL
     Route: 048
     Dates: start: 20040401, end: 20040406
  4. EXELON [Concomitant]
  5. HALDOL [Concomitant]
  6. REMERON [Concomitant]
  7. ZYPREXA [Concomitant]
  8. LEVAQUIN [Concomitant]
  9. CELEXA [Concomitant]
  10. MOTRIN [Concomitant]
  11. PREVACID [Concomitant]

REACTIONS (3)
  - NEUROLEPTIC MALIGNANT SYNDROME [None]
  - PNEUMONIA [None]
  - SEPSIS [None]
